FAERS Safety Report 4450010-3 (Version None)
Quarter: 2004Q3

REPORT INFORMATION
  Report Type: 
  Country: None (occurrence: None)
  Receive Date: 20040910
  Receipt Date: 20040616
  Transmission Date: 20050211
  Serious: Yes (Other)
  Sender: FDA-Public Use
  Company Number: S04-USA-03771-01

PATIENT

DRUGS (1)
  1. LEXAPRO [Suspect]

REACTIONS (1)
  - WEIGHT INCREASED [None]
